FAERS Safety Report 4329737-X (Version None)
Quarter: 2004Q2

REPORT INFORMATION
  Report Type: 
  Country: None (occurrence: None)
  Receive Date: 20040401
  Receipt Date: 20040330
  Transmission Date: 20050107
  Serious: Yes (Death, Hospitalization)
  Sender: FDA-Public Use
  Company Number: US-GLAXOSMITHKLINE-A0505089A

PATIENT
  Age: 36 Year
  Sex: Male

DRUGS (6)
  1. WELLBUTRIN [Suspect]
     Route: 048
  2. TIPRANAVIR + RITONAVIR [Suspect]
     Route: 048
     Dates: start: 20030808, end: 20031008
  3. BACTRIM [Suspect]
  4. ZITHROMAX [Suspect]
  5. PREVACID [Suspect]
  6. T-20 [Suspect]

REACTIONS (2)
  - CENTRAL NERVOUS SYSTEM LYMPHOMA [None]
  - LOBAR PNEUMONIA [None]
